FAERS Safety Report 5397433-6 (Version None)
Quarter: 2007Q3

REPORT INFORMATION
  Report Type: 
  Country: None (occurrence: None)
  Receive Date: 20070726
  Receipt Date: 20070712
  Transmission Date: 20080115
  Serious: Yes (Hospitalization)
  Sender: FDA-Public Use
  Company Number: US-JNJFOC-20070202973

PATIENT
  Sex: Female
  Weight: 121.56 kg

DRUGS (2)
  1. ORTHO EVRA [Suspect]
     Indication: DYSMENORRHOEA
     Route: 062
  2. ORTHO EVRA [Suspect]
     Indication: POLYCYSTIC OVARIES
     Route: 062

REACTIONS (2)
  - COMPLEX PARTIAL SEIZURES [None]
  - DEEP VEIN THROMBOSIS [None]
